FAERS Safety Report 8380380-5 (Version None)
Quarter: 2012Q2

REPORT INFORMATION
  Report Type: 
  Country: None (occurrence: None)
  Receive Date: 20120523
  Receipt Date: 20120515
  Transmission Date: 20120825
  Serious: Yes (Other)
  Sender: FDA-Public Use
  Company Number: AT-ASTRAZENECA-2012SE31709

PATIENT

DRUGS (1)
  1. ATACAND [Suspect]
     Route: 048

REACTIONS (1)
  - RESPIRATORY TRACT INFECTION [None]
